FAERS Safety Report 15010983 (Version 1)
Quarter: 2018Q2

REPORT INFORMATION
  Report Type: Report from Study
  Country: JP (occurrence: JP)
  Receive Date: 20180614
  Receipt Date: 20180614
  Transmission Date: 20180711
  Serious: Yes (Other)
  Sender: FDA-Public Use
  Company Number: JP-ASTRAZENECA-2018SE77302

PATIENT
  Age: 69 Year
  Sex: Male

DRUGS (4)
  1. ADOAIR [Concomitant]
     Active Substance: FLUTICASONE PROPIONATE\SALMETEROL XINAFOATE
  2. NORVASC [Concomitant]
     Active Substance: AMLODIPINE BESYLATE
  3. SAXAGLIPTIN [Suspect]
     Active Substance: SAXAGLIPTIN
     Indication: TYPE 2 DIABETES MELLITUS
     Route: 048
     Dates: start: 20150522
  4. AMARYL [Concomitant]
     Active Substance: GLIMEPIRIDE
     Dates: end: 20150619

REACTIONS (2)
  - Spinal compression fracture [Unknown]
  - Cardiac failure chronic [Recovering/Resolving]

NARRATIVE: CASE EVENT DATE: 20170919
